FAERS Safety Report 10225113 (Version 2)
Quarter: 2014Q2

REPORT INFORMATION
  Report Type: Report from Study
  Country: CO (occurrence: CO)
  Receive Date: 20140609
  Receipt Date: 20140609
  Transmission Date: 20141212
  Serious: Yes (Death)
  Sender: FDA-Public Use
  Company Number: CO-ASTRAZENECA-2014SE31812

PATIENT
  Age: 55 Year
  Sex: Male

DRUGS (4)
  1. BRILINTA [Suspect]
     Indication: INFARCTION
     Route: 048
     Dates: start: 20140414, end: 20140426
  2. ASA [Concomitant]
  3. INSULIN [Concomitant]
  4. ANTIHYPERTENSIVE DRUG [Concomitant]

REACTIONS (1)
  - Respiratory arrest [Fatal]
